FAERS Safety Report 8863428 (Version 1)
Quarter: 2012Q4

REPORT INFORMATION
  Report Type: 
  Country: US (occurrence: US)
  Receive Date: 20121024
  Receipt Date: 20121024
  Transmission Date: 20130627
  Serious: No
  Sender: FDA-Public Use
  Company Number: US-AMGEN-USASP2011062673

PATIENT
  Age: 35 Year
  Sex: Female
  Weight: 64.85 kg

DRUGS (10)
  1. ENBREL [Suspect]
     Indication: PRODUCT USED FOR UNKNOWN INDICATION
     Dosage: 50 mg, qwk
     Route: 058
  2. CYMBALTA [Concomitant]
     Dosage: 60 mg, UNK
  3. METHOTREXATE /00113802/ [Concomitant]
     Dosage: 2.5 mg, UNK
  4. LYRICA [Concomitant]
     Dosage: 200 mg, UNK
  5. OMEPRAZOLE [Concomitant]
     Dosage: 40 mg, UNK
  6. HYDROXYCHLOROQUINE [Concomitant]
     Dosage: 200 mg, UNK
  7. FOLIC ACID [Concomitant]
     Dosage: 1 mg, UNK
  8. VITAMIN D /00107901/ [Concomitant]
     Dosage: 1000 UNK, UNK
  9. VITAMIN C                          /00008001/ [Concomitant]
  10. CALCIUM [Concomitant]
     Dosage: 500 mg, UNK

REACTIONS (1)
  - Injection site reaction [Unknown]
